FAERS Safety Report 17575029 (Version 1)
Quarter: 2020Q1

REPORT INFORMATION
  Report Type: Spontaneous
  Country: FR (occurrence: FR)
  Receive Date: 20200324
  Receipt Date: 20200324
  Transmission Date: 20200409
  Serious: Yes (Hospitalization, Other)
  Sender: FDA-Public Use
  Company Number: FR-AUROBINDO-AUR-APL-2020-014942

PATIENT
  Age: 62 Year
  Sex: Female

DRUGS (5)
  1. PRETERAX [Concomitant]
     Active Substance: INDAPAMIDE\PERINDOPRIL
     Indication: HYPERTENSION
     Dosage: 1 DOSAGE FORM, ONCE A DAY
     Route: 048
  2. TERALITHE [Concomitant]
     Active Substance: LITHIUM CARBONATE
     Indication: BIPOLAR DISORDER
     Dosage: 800 MILLIGRAM, ONCE A DAY
     Route: 048
  3. BISOPROLOL FUMARATE. [Concomitant]
     Active Substance: BISOPROLOL FUMARATE
     Indication: HYPERTENSION
     Dosage: 2.5 MILLIGRAM, ONCE A DAY
     Route: 048
  4. TAMOXIFENE CITRATE [Concomitant]
     Active Substance: TAMOXIFEN CITRATE
     Indication: BREAST CANCER
     Dosage: 20 MILLIGRAM, ONCE A DAY
     Route: 048
     Dates: start: 2016
  5. GABAPENTIN. [Suspect]
     Active Substance: GABAPENTIN
     Indication: BIPOLAR DISORDER
     Dosage: 1600 MILLIGRAM, ONCE A DAY (NON ADMINISTR?)
     Route: 048
     Dates: end: 20191228

REACTIONS (6)
  - Depressed level of consciousness [Recovered/Resolved]
  - Psychiatric decompensation [Recovered/Resolved]
  - Product dose omission [Recovered/Resolved]
  - Withdrawal syndrome [Recovered/Resolved]
  - Product prescribing error [Recovered/Resolved]
  - Deprescribing error [Recovered/Resolved]

NARRATIVE: CASE EVENT DATE: 20191228
